FAERS Safety Report 7311328-X (Version None)
Quarter: 2011Q1

REPORT INFORMATION
  Report Type: 
  Country: None (occurrence: None)
  Receive Date: 20110224
  Receipt Date: 20110214
  Transmission Date: 20110831
  Serious: Yes (Hospitalization)
  Sender: FDA-Public Use
  Company Number: US-ACTELION-A-NJ2011-45159

PATIENT

DRUGS (4)
  1. ASPIRIN [Concomitant]
  2. TRACLEER [Suspect]
     Indication: PULMONARY ARTERIAL HYPERTENSION
     Dosage: UNK
     Route: 048
     Dates: start: 20091030
  3. LASIX [Concomitant]
  4. REVATIO [Concomitant]

REACTIONS (5)
  - PNEUMONIA [None]
  - DIVERTICULITIS [None]
  - PYREXIA [None]
  - CARDIAC FAILURE [None]
  - ANAEMIA [None]
